FAERS Safety Report 17616384 (Version 2)
Quarter: 2025Q3

REPORT INFORMATION
  Report Type: Report from Study
  Country: US (occurrence: US)
  Receive Date: 20200402
  Receipt Date: 20250723
  Transmission Date: 20251020
  Serious: No
  Sender: ROCHE
  Company Number: US-ROCHE-2572893

PATIENT
  Sex: Male

DRUGS (1)
  1. CELLCEPT [Suspect]
     Active Substance: MYCOPHENOLATE MOFETIL
     Indication: Renal transplant
     Dosage: 250MG 3 CAPSULES BID
     Route: 048

REACTIONS (4)
  - Neuropathy peripheral [Unknown]
  - Diabetes mellitus [Unknown]
  - Sciatic nerve neuropathy [Unknown]
  - Pancreatic disorder [Unknown]
